FAERS Safety Report 7157884-6 (Version None)
Quarter: 2010Q4

REPORT INFORMATION
  Report Type: 
  Country: None (occurrence: None)
  Receive Date: 20101214
  Receipt Date: 20101206
  Transmission Date: 20110411
  Serious: Yes (Other)
  Sender: FDA-Public Use
  Company Number: US-PFIZER INC-2010164923

PATIENT
  Sex: Female
  Weight: 86 kg

DRUGS (3)
  1. CHANTIX [Suspect]
     Indication: SMOKING CESSATION THERAPY
     Dosage: 0.5 MG/DAY
     Route: 048
     Dates: start: 20101129
  2. CYMBALTA [Concomitant]
     Indication: DEPRESSION
     Dosage: 60 MG, 2X/DAY
     Route: 048
  3. LYRICA [Concomitant]
     Dosage: 225 MG, 2X/DAY
     Route: 048

REACTIONS (2)
  - HYPERSENSITIVITY [None]
  - TONGUE BLISTERING [None]
